FAERS Safety Report 4951335-5 (Version None)
Quarter: 2006Q1

REPORT INFORMATION
  Report Type: 
  Country: None (occurrence: None)
  Receive Date: 20060317
  Receipt Date: 20060301
  Transmission Date: 20060701
  Serious: Yes (Death)
  Sender: FDA-Public Use
  Company Number: DE200603000550

PATIENT
  Age: 71 Year
  Sex: Female
  Weight: 58 kg

DRUGS (4)
  1. FORTEO [Suspect]
     Indication: OSTEOPOROTIC FRACTURE
     Dosage: 20 UG, DAILY (1/D),
     Dates: start: 20040930
  2. FORTEO [Concomitant]
  3. TRAMADOL OR (TRAMADOL HYDROCHLORIDE) [Concomitant]
  4. VITAMIN D [Concomitant]

REACTIONS (3)
  - APATHY [None]
  - CONDITION AGGRAVATED [None]
  - DEPRESSION [None]
